FAERS Safety Report 10897551 (Version 1)
Quarter: 2015Q1

REPORT INFORMATION
  Report Type: Spontaneous
  Country: US (occurrence: None)
  Receive Date: 20150302
  Receipt Date: 20150302
  Transmission Date: 20150721
  Serious: Yes (Hospitalization)
  Sender: FDA-Public Use
  Company Number: None

PATIENT
  Age: 46 Year
  Sex: Female
  Weight: 77.27 kg

DRUGS (3)
  1. CYCLOPHOSPHAMIDE. [Suspect]
     Active Substance: CYCLOPHOSPHAMIDE
     Dates: end: 20150213
  2. FLUDARABINE PHOSPHATE. [Suspect]
     Active Substance: FLUDARABINE PHOSPHATE
     Dates: end: 20150213
  3. RITUXIMAB (MOAB C2B8 ANTI CD20 CHIMERIC) [Suspect]
     Active Substance: RITUXIMAB
     Dates: end: 20150213

REACTIONS (4)
  - Influenza [None]
  - Malaise [None]
  - Headache [None]
  - Neutrophil count decreased [None]

NARRATIVE: CASE EVENT DATE: 20150225
